FAERS Safety Report 7617785-3 (Version None)
Quarter: 2011Q3

REPORT INFORMATION
  Report Type: 
  Country: None (occurrence: None)
  Receive Date: 20110718
  Receipt Date: 20110711
  Transmission Date: 20111222
  Serious: Yes (Hospitalization)
  Sender: FDA-Public Use
  Company Number: ZA-JNJFOC-20101108185

PATIENT
  Age: 4 Decade
  Sex: Male

DRUGS (1)
  1. RISPERDAL CONSTA [Suspect]
     Indication: ILL-DEFINED DISORDER
     Route: 030

REACTIONS (4)
  - FATIGUE [None]
  - CONDITION AGGRAVATED [None]
  - ASTHENIA [None]
  - SOMNOLENCE [None]
